FAERS Safety Report 7249094-9 (Version None)
Quarter: 2011Q1

REPORT INFORMATION
  Report Type: 
  Country: None (occurrence: None)
  Receive Date: 20110128
  Receipt Date: 20101019
  Transmission Date: 20110831
  Serious: Yes (Hospitalization, Other)
  Sender: FDA-Public Use
  Company Number: US-BAYER-201016387NA

PATIENT
  Sex: Female
  Weight: 68.182 kg

DRUGS (15)
  1. YASMIN [Suspect]
     Route: 048
     Dates: start: 20051101, end: 20061201
  2. TYLENOL W/ CODEINE NO. 3 [Concomitant]
  3. IBUPROFEN [Concomitant]
     Indication: HEADACHE
  4. WELLBUTRIN [Concomitant]
     Indication: DEPRESSION
  5. ZYRTEC [Concomitant]
     Indication: MULTIPLE ALLERGIES
  6. CYMBALTA [Concomitant]
     Indication: POSTPARTUM DEPRESSION
     Route: 048
  7. YAZ [Suspect]
     Route: 048
     Dates: start: 20080501, end: 20090201
  8. ORTHO-NOVUM [ETHINYLESTRADIOL,NORETHISTERONE] [Concomitant]
     Dosage: UNK
     Dates: start: 19900101, end: 20030101
  9. ZOLOFT [Concomitant]
     Indication: ANXIETY
     Route: 048
     Dates: start: 19970101
  10. WELLBUTRIN [Concomitant]
     Indication: ANXIETY
     Route: 048
     Dates: start: 20070101
  11. YASMIN [Suspect]
     Route: 048
     Dates: start: 20040401
  12. ORTHO-NOVUM [ETHINYLESTRADIOL,NORETHISTERONE] [Concomitant]
     Dosage: UNK
     Dates: start: 20060101, end: 20070101
  13. LORTAB [Concomitant]
     Indication: PAIN
     Dates: start: 20060707
  14. ZOLOFT [Concomitant]
     Indication: DEPRESSION
  15. BENADRYL [Concomitant]
     Indication: MULTIPLE ALLERGIES

REACTIONS (6)
  - VOMITING [None]
  - ABDOMINAL PAIN [None]
  - CHOLELITHIASIS [None]
  - NAUSEA [None]
  - CHOLECYSTITIS CHRONIC [None]
  - BILE DUCT STONE [None]
